FAERS Safety Report 6010925-1 (Version None)
Quarter: 2008Q4

REPORT INFORMATION
  Report Type: 
  Country: None (occurrence: None)
  Receive Date: 20081218
  Receipt Date: 20081212
  Transmission Date: 20090506
  Serious: Yes (Congenital Anomaly)
  Sender: FDA-Public Use
  Company Number: A0684474A

PATIENT
  Sex: Female

DRUGS (4)
  1. PAXIL [Suspect]
     Indication: PANIC DISORDER
     Dates: start: 19990101, end: 20010101
  2. PAXIL CR [Suspect]
     Indication: PANIC DISORDER
     Dosage: 37.5MG PER DAY
     Dates: start: 19990101, end: 20070101
  3. PROMETHAZINE [Concomitant]
     Dates: start: 20051031
  4. VITAMIN AND MINERAL PRENATAL SUPPLEMENT W/ FOLIC ACID CAP [Concomitant]

REACTIONS (13)
  - DRUG EXPOSURE DURING PREGNANCY [None]
  - EATING DISORDER [None]
  - HEARING IMPAIRED [None]
  - IMMUNE SYSTEM DISORDER [None]
  - JUVENILE ARTHRITIS [None]
  - MULTIPLE CONGENITAL ABNORMALITIES [None]
  - PERSISTENT FOETAL CIRCULATION [None]
  - PNEUMONIA [None]
  - PSYCHOMOTOR SKILLS IMPAIRED [None]
  - RESPIRATORY DISORDER [None]
  - RESPIRATORY SYNCYTIAL VIRUS INFECTION [None]
  - SPEECH DISORDER [None]
  - UVEITIS [None]
